FAERS Safety Report 10958522 (Version 1)
Quarter: 2015Q1

REPORT INFORMATION
  Report Type: Spontaneous
  Country: US (occurrence: US)
  Receive Date: 20150326
  Receipt Date: 20150326
  Transmission Date: 20150721
  Serious: No
  Sender: FDA-Public Use
  Company Number: US-GLAXOSMITHKLINE-US2015039681

PATIENT
  Sex: Female

DRUGS (1)
  1. FLUTICASONE NASAL SPRAY [Suspect]
     Active Substance: FLUTICASONE\FLUTICASONE PROPIONATE
     Indication: ALLERGIC SINUSITIS
     Dosage: 1 PUFF(S), BID
     Route: 055
     Dates: start: 20050301, end: 20050303

REACTIONS (1)
  - Headache [Recovered/Resolved]
